FAERS Safety Report 9478868 (Version 1)
Quarter: 2013Q3

REPORT INFORMATION
  Report Type: Spontaneous
  Country: US (occurrence: US)
  Receive Date: 20130827
  Receipt Date: 20130827
  Transmission Date: 20140515
  Serious: Yes (Other)
  Sender: FDA-Public Use
  Company Number: US-BAYER-2013-103201

PATIENT
  Age: 23 Year
  Sex: Female

DRUGS (14)
  1. YASMIN [Suspect]
  2. YAZ [Suspect]
  3. LOPRESSOR [Concomitant]
  4. ABILIFY [Concomitant]
  5. CALCIUM CARBONATE [Concomitant]
  6. RELAFEN [Concomitant]
  7. EFFEXOR [Concomitant]
  8. FIBER [Concomitant]
  9. FOLIC ACID [Concomitant]
  10. NEURONTIN [Concomitant]
  11. PRENATAL VITAMINS [VIT C,B5,B12,D2,B3,B6,RETINOL PALMIT,B2,B1 MONO [Concomitant]
  12. ZOLOFT [Concomitant]
  13. HUMALOG [Concomitant]
  14. LOVENOX [Concomitant]

REACTIONS (1)
  - Pulmonary embolism [Recovered/Resolved]
